FAERS Safety Report 11418536 (Version 1)
Quarter: 2015Q3

REPORT INFORMATION
  Report Type: Spontaneous
  Country: US (occurrence: US)
  Receive Date: 20150826
  Receipt Date: 20150826
  Transmission Date: 20151125
  Serious: Yes (Other)
  Sender: FDA-Public Use
  Company Number: US-ACCORD-031949

PATIENT
  Age: 58 Year
  Sex: Female

DRUGS (4)
  1. BETAMETHASONE/CLOTRIMAZOLE [Concomitant]
  2. DESITIN [Concomitant]
     Active Substance: ZINC OXIDE
  3. LISINOPRIL ACCORD [Suspect]
     Active Substance: LISINOPRIL
     Indication: HYPERTENSION
     Dosage: STRENGTH : 10 MG
     Route: 048
     Dates: start: 20150629, end: 20150701
  4. VALTREX [Concomitant]
     Active Substance: VALACYCLOVIR HYDROCHLORIDE

REACTIONS (2)
  - Dizziness [Not Recovered/Not Resolved]
  - Product substitution issue [Unknown]

NARRATIVE: CASE EVENT DATE: 20150629
